FAERS Safety Report 25827544 (Version 1)
Quarter: 2025Q3

REPORT INFORMATION
  Report Type: Spontaneous
  Country: US (occurrence: US)
  Receive Date: 20250920
  Receipt Date: 20250920
  Transmission Date: 20251021
  Serious: Yes (Death, Other)
  Sender: XCOVERY HOLDINGS
  Company Number: US-XCO-202500117

PATIENT
  Age: 78 Year
  Sex: Female

DRUGS (2)
  1. ENSACOVE [Suspect]
     Active Substance: ENSARTINIB HYDROCHLORIDE
     Indication: Product used for unknown indication
     Dosage: START DATE: 05-AUG-2025
     Route: 048
  2. LACTULOSE [Concomitant]
     Active Substance: LACTULOSE
     Indication: Constipation
     Route: 065

REACTIONS (3)
  - Constipation [Unknown]
  - Oedema [Unknown]
  - Death [Fatal]

NARRATIVE: CASE EVENT DATE: 20250101
